FAERS Safety Report 8976488 (Version 1)
Quarter: 2012Q4

REPORT INFORMATION
  Report Type: 
  Country: CA (occurrence: CA)
  Receive Date: 20121220
  Receipt Date: 20121220
  Transmission Date: 20130627
  Serious: Yes (Disabling)
  Sender: FDA-Public Use
  Company Number: CA-SHIRE-ALL1-2012-01716

PATIENT
  Sex: Female
  Weight: 54.42 kg

DRUGS (3)
  1. VYVANSE [Suspect]
     Indication: ATTENTION DEFICIT/HYPERACTIVITY DISORDER
     Dosage: 40 mg, 1x/day:qd
     Route: 048
     Dates: start: 20111115, end: 20120330
  2. ALPRAZ [Concomitant]
     Indication: ANXIETY
     Dosage: 0.5 DF, 3x/day:tid (PRN)
     Route: 065
     Dates: start: 20120312
  3. IMOVANE [Concomitant]
     Indication: INSOMNIA
     Dosage: 7.5 DF, As req^d (at bedtime)
     Route: 065
     Dates: start: 20100301

REACTIONS (9)
  - Raynaud^s phenomenon [Not Recovered/Not Resolved]
  - Pain [Recovering/Resolving]
  - Dyspepsia [Recovering/Resolving]
  - Aphagia [Recovering/Resolving]
  - Gastrointestinal disorder [Unknown]
  - Epigastric discomfort [Unknown]
  - Weight decreased [Recovering/Resolving]
  - Decreased appetite [Recovering/Resolving]
  - Abdominal pain [Unknown]
